FAERS Safety Report 9229505 (Version 1)
Quarter: 2013Q2

REPORT INFORMATION
  Report Type: Spontaneous
  Country: US (occurrence: US)
  Receive Date: 20130412
  Receipt Date: 20130412
  Transmission Date: 20140414
  Serious: Yes (Hospitalization)
  Sender: FDA-Public Use
  Company Number: US-009507513-1304USA003471

PATIENT
  Age: 31 Year
  Sex: Female

DRUGS (10)
  1. NEXPLANON [Suspect]
     Indication: CONTRACEPTION
     Dosage: 1 DF, UNK
     Route: 059
     Dates: start: 20120613
  2. FEOSOL [Concomitant]
  3. PROZAC [Concomitant]
  4. FLOVENT HFA [Concomitant]
  5. ADVAIR [Concomitant]
  6. MAGNESIUM (UNSPECIFIED) [Concomitant]
  7. SINGULAIR [Concomitant]
  8. NAPROSYN [Concomitant]
  9. INDERAL [Concomitant]
  10. SEROQUEL [Concomitant]

REACTIONS (6)
  - Acute respiratory failure [Unknown]
  - Metrorrhagia [Recovered/Resolved]
  - Menorrhagia [Unknown]
  - Device kink [Unknown]
  - Metrorrhagia [Unknown]
  - Incoherent [Unknown]
